FAERS Safety Report 9840405 (Version 1)
Quarter: 2013Q4

REPORT INFORMATION
  Report Type: Spontaneous
  Country: US (occurrence: None)
  Receive Date: 20131223
  Receipt Date: 20131223
  Transmission Date: 20140711
  Serious: No
  Sender: FDA-Public Use
  Company Number: 220491LEO

PATIENT
  Sex: Female

DRUGS (3)
  1. PICATO [Suspect]
     Indication: ACTINIC KERATOSIS
     Dosage: DAILY, DERMAL
     Dates: start: 20130205, end: 20130207
  2. DIOVAN(VALSARTAN) [Concomitant]
  3. LIPITOR(ATORVASTATIN CALCIUM) [Concomitant]

REACTIONS (3)
  - Application site vesicles [None]
  - Application site exfoliation [None]
  - Application site erythema [None]
